FAERS Safety Report 11312152 (Version 1)
Quarter: 2015Q3

REPORT INFORMATION
  Report Type: Spontaneous
  Country: FR (occurrence: FR)
  Receive Date: 20150727
  Receipt Date: 20150727
  Transmission Date: 20151125
  Serious: Yes (Hospitalization)
  Sender: FDA-Public Use
  Company Number: FR-TEVA-579775ISR

PATIENT
  Age: 83 Year
  Sex: Female

DRUGS (15)
  1. SINEMET [Suspect]
     Active Substance: CARBIDOPA\LEVODOPA
     Dosage: 6 DOSAGE FORMS DAILY; ONGOING, 1 DF= LEVODOPA 100 MG + CARBIDOPA 10 MG
     Route: 048
     Dates: start: 201501
  2. AZILECT [Suspect]
     Active Substance: RASAGILINE MESYLATE
     Indication: PARKINSON^S DISEASE
     Dosage: 1 MILLIGRAM DAILY;
     Route: 048
     Dates: start: 201501, end: 20150604
  3. LIPANTHYL [Concomitant]
     Active Substance: FENOFIBRATE
     Dosage: 1 DOSAGE FORMS DAILY; IN THE EVENING
  4. IMOVANE [Concomitant]
     Active Substance: ZOPICLONE
     Dosage: 7.5 MILLIGRAM DAILY; AT BED TIME
  5. ALPRAZOLAM. [Concomitant]
     Active Substance: ALPRAZOLAM
     Dosage: .5 MILLIGRAM DAILY; IN THE MORNING AND AT MIDDAY
  6. TRAMADOL BASE [Suspect]
     Active Substance: TRAMADOL
     Indication: PAIN
     Route: 048
     Dates: start: 20150423, end: 20150427
  7. KETEK [Suspect]
     Active Substance: TELITHROMYCIN
     Indication: BACTERIAL INFECTION
     Dosage: 800 MILLIGRAM DAILY;
     Route: 048
     Dates: start: 20150423, end: 20150427
  8. FORADIL [Suspect]
     Active Substance: FORMOTEROL FUMARATE
     Indication: BRONCHIAL DISORDER
     Route: 055
     Dates: start: 20150423, end: 20150604
  9. LOVENOX [Concomitant]
     Active Substance: ENOXAPARIN SODIUM
     Dosage: 4000 IU (INTERNATIONAL UNIT) DAILY; IN THE MORNING
  10. FLIXOTIDE [Concomitant]
     Active Substance: FLUTICASONE PROPIONATE
     Dosage: 500 MILLIGRAM DAILY; IN THE MORNING AND IN THE EVENING
  11. ALPRAZOLAM. [Concomitant]
     Active Substance: ALPRAZOLAM
     Dosage: .5 MILLIGRAM DAILY; IN THE EVENING
  12. SIFROL [Suspect]
     Active Substance: PRAMIPEXOLE
     Indication: PARKINSON^S DISEASE
     Dosage: 2.1 MILLIGRAM DAILY; ONGOING
     Route: 048
     Dates: start: 2011
  13. SINEMET [Suspect]
     Active Substance: CARBIDOPA\LEVODOPA
     Indication: PARKINSON^S DISEASE
     Dosage: 3 DOSAGE FORMS DAILY; 1 DF= LEVODOPA 100 MG + CARBIDOPA 10 MG
     Route: 048
     Dates: start: 2011, end: 201501
  14. SOLUPRED [Suspect]
     Active Substance: PREDNISOLONE
     Indication: INFLAMMATION
     Route: 048
     Dates: start: 20150423, end: 20150427
  15. PARACETAMOL [Concomitant]
     Active Substance: ACETAMINOPHEN

REACTIONS (2)
  - Bronchopneumopathy [Unknown]
  - Hypertension [Recovered/Resolved]

NARRATIVE: CASE EVENT DATE: 20150427
